FAERS Safety Report 8539027-7 (Version None)
Quarter: 2012Q3

REPORT INFORMATION
  Report Type: 
  Country: None (occurrence: None)
  Receive Date: 20120713
  Receipt Date: 20120702
  Transmission Date: 20120928
  Serious: Yes (Other)
  Sender: FDA-Public Use
  Company Number: 2012P1048133

PATIENT
  Age: 57 Year
  Sex: Male
  Weight: 106 kg

DRUGS (4)
  1. OXYCODONE HCL [Concomitant]
  2. HYDROMORPHINE HYDROCHLORIDE [Concomitant]
  3. FENTANYL CITRATE [Suspect]
     Indication: BREAKTHROUGH PAIN
     Dosage: 25 UG;QH; 500 UG;QH; 50 UG;QH
  4. MIDAZOLAM [Concomitant]

REACTIONS (2)
  - DRUG DEPENDENCE [None]
  - HYPERAESTHESIA [None]
